FAERS Safety Report 21308048 (Version 1)
Quarter: 2022Q3

REPORT INFORMATION
  Report Type: Spontaneous
  Country: CH (occurrence: CH)
  Receive Date: 20220908
  Receipt Date: 20220908
  Transmission Date: 20221027
  Serious: Yes (Hospitalization, Other)
  Sender: FDA-Public Use
  Company Number: None

PATIENT
  Age: 77 Year
  Sex: Female
  Weight: 74 kg

DRUGS (5)
  1. ULTRAVIST [Suspect]
     Active Substance: IOPROMIDE
     Indication: Angiocardiogram
     Dosage: 110 ML, UNK
     Route: 013
     Dates: start: 20220823, end: 20220823
  2. HEPARIN-NA [Concomitant]
     Dosage: 20000 U, QD
     Route: 041
  3. ASPIRIN [Concomitant]
     Active Substance: ASPIRIN
     Dosage: 100 MG, UNK
     Route: 048
  4. PANTOZOL [Concomitant]
     Active Substance: PANTOPRAZOLE SODIUM
     Dosage: 20 MG, UNK
     Route: 048
  5. HERBALS [Concomitant]
     Active Substance: HERBALS
     Dosage: 2 DF, UNK
     Route: 048

REACTIONS (1)
  - Contrast encephalopathy [Recovered/Resolved]

NARRATIVE: CASE EVENT DATE: 20220823
